FAERS Safety Report 17537941 (Version 1)
Quarter: 2020Q1

REPORT INFORMATION
  Report Type: Report from Study
  Country: US (occurrence: US)
  Receive Date: 20200313
  Receipt Date: 20200313
  Transmission Date: 20200409
  Serious: Yes (Life-Threatening)
  Sender: FDA-Public Use
  Company Number: US-PFIZER INC-2020101790

PATIENT
  Age: 76 Year
  Sex: Female

DRUGS (5)
  1. CEFTRIAXONE SODIUM. [Suspect]
     Active Substance: CEFTRIAXONE SODIUM
     Indication: IMMUNE TOLERANCE INDUCTION
     Dosage: 0.2 MG/ML, UNK (10 MG OF CEFTRIAXONE WITH 50 ML OF D5W/NS)
  2. CEFTRIAXONE SODIUM. [Suspect]
     Active Substance: CEFTRIAXONE SODIUM
     Dosage: 2 MG/ML, UNK (100 MG OF CEFTRIAXONE IN 50 ML OF D5W/NS)
  3. CEFTRIAXONE SODIUM. [Suspect]
     Active Substance: CEFTRIAXONE SODIUM
     Dosage: 20 MG/ML, UNK (2000 MG OF CEFTRIAXONE IN 100 ML OF D5W/NS)
  4. AMPICILLIN [Concomitant]
     Active Substance: AMPICILLIN
     Indication: ENDOCARDITIS
  5. AMPICILLIN [Concomitant]
     Active Substance: AMPICILLIN
     Indication: BACTERAEMIA
     Dosage: UNK

REACTIONS (4)
  - Oxygen saturation decreased [Recovered/Resolved]
  - Pruritus [Unknown]
  - Bronchospasm [Recovered/Resolved]
  - Erythema [Unknown]
